FAERS Safety Report 20108139 (Version 9)
Quarter: 2024Q1

REPORT INFORMATION
  Report Type: Report from Study
  Country: PA (occurrence: PA)
  Receive Date: 20211124
  Receipt Date: 20240307
  Transmission Date: 20240410
  Serious: Yes (Life-Threatening, Hospitalization, Other)
  Sender: FDA-Public Use
  Company Number: PA-002147023-NVSC2020PA070457

PATIENT

DRUGS (13)
  1. RUXOLITINIB [Suspect]
     Active Substance: RUXOLITINIB
     Indication: Primary myelofibrosis
     Dosage: 40 MG, BID
     Route: 048
     Dates: start: 2015
  2. RUXOLITINIB [Suspect]
     Active Substance: RUXOLITINIB
     Dosage: 30 MG, BID
     Route: 048
     Dates: start: 201606
  3. RUXOLITINIB [Suspect]
     Active Substance: RUXOLITINIB
     Dosage: 40 MG, BID
     Route: 048
     Dates: start: 201606, end: 20211029
  4. RUXOLITINIB [Suspect]
     Active Substance: RUXOLITINIB
     Dosage: UNK
     Route: 065
     Dates: start: 2017
  5. RUXOLITINIB [Suspect]
     Active Substance: RUXOLITINIB
     Dosage: 40 MG, BID
     Route: 048
     Dates: start: 2017
  6. RUXOLITINIB [Suspect]
     Active Substance: RUXOLITINIB
     Dosage: 40 MG, QD
     Route: 065
     Dates: start: 2020, end: 20211029
  7. RUXOLITINIB [Suspect]
     Active Substance: RUXOLITINIB
     Dosage: 15 MG, QD
     Route: 048
  8. RUXOLITINIB [Suspect]
     Active Substance: RUXOLITINIB
     Dosage: 40 MG, BID
     Route: 048
     Dates: start: 20211029
  9. RUXOLITINIB [Suspect]
     Active Substance: RUXOLITINIB
     Dosage: 40 MG (15 MG AND 5 MG), QD, STOPPED IN FEB 2024
     Route: 048
     Dates: start: 202309
  10. RUXOLITINIB [Suspect]
     Active Substance: RUXOLITINIB
     Dosage: UNK
     Route: 065
     Dates: start: 20170926
  11. RUXOLITINIB [Suspect]
     Active Substance: RUXOLITINIB
     Dosage: 40 MG (2 X (15 MG + 5 MG))
     Route: 065
     Dates: start: 2018
  12. PREDNISOLONE [Concomitant]
     Active Substance: PREDNISOLONE
     Indication: Product used for unknown indication
     Dosage: 20 MG, QD
     Route: 065
  13. ZOLPIDEM [Concomitant]
     Active Substance: ZOLPIDEM TARTRATE
     Indication: Product used for unknown indication
     Dosage: 12.5 MG, QD (IN NIGHT)
     Route: 065

REACTIONS (64)
  - Pain [Recovered/Resolved]
  - Arthralgia [Unknown]
  - Abdominal distension [Recovering/Resolving]
  - Agitation [Not Recovered/Not Resolved]
  - Blood alkaline phosphatase increased [Unknown]
  - Haemoglobin distribution width increased [Unknown]
  - Aspartate aminotransferase increased [Unknown]
  - Basophil count increased [Unknown]
  - Contusion [Not Recovered/Not Resolved]
  - COVID-19 [Unknown]
  - Neoplasm malignant [Unknown]
  - Confusional state [Unknown]
  - Blood creatinine decreased [Unknown]
  - Product supply issue [Not Recovered/Not Resolved]
  - Eosinophil count increased [Unknown]
  - Red blood cell count decreased [Unknown]
  - Pyrexia [Unknown]
  - Frustration tolerance decreased [Unknown]
  - Glomerular filtration rate increased [Unknown]
  - Blood glucose increased [Unknown]
  - Headache [Unknown]
  - Haematocrit decreased [Unknown]
  - Bone pain [Unknown]
  - Blood lactate dehydrogenase increased [Unknown]
  - White blood cell count increased [Unknown]
  - Decreased appetite [Unknown]
  - Haemoglobin decreased [Unknown]
  - Pneumonia [Unknown]
  - Lymphocyte count increased [Unknown]
  - Lymphocyte percentage decreased [Unknown]
  - Mean cell haemoglobin decreased [Unknown]
  - Dysmenorrhoea [Unknown]
  - Monocyte count increased [Unknown]
  - Monocyte percentage decreased [Unknown]
  - Nervousness [Unknown]
  - Neutrophil count decreased [Unknown]
  - Neutrophil percentage increased [Unknown]
  - Lung disorder [Recovering/Resolving]
  - Pain [Recovering/Resolving]
  - Off label use [Recovering/Resolving]
  - Extra dose administered [Unknown]
  - Platelet count decreased [Unknown]
  - Reticulocyte haemoglobin equivalent [Unknown]
  - Dyspnoea [Not Recovered/Not Resolved]
  - Eating disorder [Recovering/Resolving]
  - Insomnia [Recovering/Resolving]
  - Amenorrhoea [Unknown]
  - Dysstasia [Unknown]
  - Abdominal discomfort [Recovering/Resolving]
  - Weight decreased [Recovering/Resolving]
  - Malaise [Unknown]
  - Product availability issue [Unknown]
  - Feeling abnormal [Recovering/Resolving]
  - Choking [Recovering/Resolving]
  - Incorrect dose administered [Unknown]
  - Splenomegaly [Recovering/Resolving]
  - Gastritis [Recovering/Resolving]
  - Inappropriate schedule of product administration [Unknown]
  - General physical health deterioration [Unknown]
  - Fatigue [Recovering/Resolving]
  - Blood uric acid increased [Unknown]
  - Ill-defined disorder [Recovering/Resolving]
  - Asthenia [Not Recovered/Not Resolved]
  - Product prescribing error [Unknown]

NARRATIVE: CASE EVENT DATE: 20160601
